FAERS Safety Report 4287938-3 (Version None)
Quarter: 2004Q1

REPORT INFORMATION
  Report Type: 
  Country: None (occurrence: None)
  Receive Date: 20040205
  Receipt Date: 20040123
  Transmission Date: 20041129
  Serious: Yes (Hospitalization)
  Sender: FDA-Public Use
  Company Number: DSA_23361_2003

PATIENT
  Age: 39 Year
  Sex: Male
  Weight: 51.9 kg

DRUGS (5)
  1. ENALAPRIL MALEATE [Suspect]
     Indication: RENOVASCULAR HYPERTENSION
     Dosage: 5 MG BID PO
     Route: 048
     Dates: start: 20010801, end: 20011012
  2. CANDESARTAN CILEXETIL [Suspect]
     Indication: RENOVASCULAR HYPERTENSION
     Dosage: 8 MG Q DAY PO
     Route: 048
     Dates: start: 20010801, end: 20011012
  3. ATENOLOL [Concomitant]
  4. DOXAZOSIN MESYLATE [Concomitant]
  5. NIFEDIPINE [Concomitant]

REACTIONS (18)
  - ALANINE AMINOTRANSFERASE INCREASED [None]
  - ASPARTATE AMINOTRANSFERASE INCREASED [None]
  - BLOOD ALKALINE PHOSPHATASE INCREASED [None]
  - BLOOD CHLORIDE INCREASED [None]
  - BLOOD LACTATE DEHYDROGENASE INCREASED [None]
  - BLOOD PRESSURE INCREASED [None]
  - BLOOD SODIUM INCREASED [None]
  - GAMMA-GLUTAMYLTRANSFERASE INCREASED [None]
  - HAEMATOCRIT DECREASED [None]
  - HAEMODIALYSIS [None]
  - HAEMOGLOBIN DECREASED [None]
  - HEART RATE DECREASED [None]
  - MALAISE [None]
  - PLATELET COUNT DECREASED [None]
  - PROTEIN URINE PRESENT [None]
  - RENAL ARTERY STENOSIS [None]
  - RENAL FAILURE ACUTE [None]
  - URINARY OCCULT BLOOD POSITIVE [None]
